FAERS Safety Report 8467515-0 (Version None)
Quarter: 2012Q2

REPORT INFORMATION
  Report Type: 
  Country: None (occurrence: None)
  Receive Date: 20120626
  Receipt Date: 20120625
  Transmission Date: 20120825
  Serious: Yes (Hospitalization)
  Sender: FDA-Public Use
  Company Number: SE-ROCHE-1081366

PATIENT
  Age: 36 Year
  Sex: Female

DRUGS (4)
  1. PEGASYS [Suspect]
     Indication: HEPATITIS
     Dates: start: 20120201
  2. COPEGUS [Suspect]
     Indication: HEPATITIS
     Route: 048
     Dates: start: 20120201
  3. COPEGUS [Suspect]
     Indication: DYSPEPSIA
  4. PEGASYS [Suspect]
     Indication: DYSPEPSIA

REACTIONS (2)
  - PANCYTOPENIA [None]
  - TRANSAMINASES INCREASED [None]
